FAERS Safety Report 5669716-3 (Version None)
Quarter: 2008Q1

REPORT INFORMATION
  Report Type: 
  Country: None (occurrence: None)
  Receive Date: 20080317
  Receipt Date: 20080305
  Transmission Date: 20080703
  Serious: Yes (Hospitalization, Other)
  Sender: FDA-Public Use
  Company Number: PHHO2008ES00720

PATIENT
  Age: 72 Year
  Sex: Female
  Weight: 62 kg

DRUGS (3)
  1. ALISKIREN VS PLACEBO [Suspect]
     Indication: CARDIOVASCULAR DISORDER
     Dosage: CODE NOT BROKEN
     Route: 048
     Dates: start: 20080104
  2. HYDROCHLOROTHIAZIDE [Suspect]
     Indication: HYPERTENSION
     Dosage: 25 MG/DAILY
     Route: 048
     Dates: start: 20071121, end: 20080107
  3. EPROSARTAN [Concomitant]
     Indication: HYPERTENSION
     Dates: start: 20070214

REACTIONS (4)
  - ATRIOVENTRICULAR BLOCK SECOND DEGREE [None]
  - CARDIAC PACEMAKER INSERTION [None]
  - MOTION SICKNESS [None]
  - ORTHOSTATIC HYPOTENSION [None]
